FAERS Safety Report 25547392 (Version 1)
Quarter: 2025Q3

REPORT INFORMATION
  Report Type: Report from Study
  Country: CN (occurrence: CN)
  Receive Date: 20250714
  Receipt Date: 20250714
  Transmission Date: 20251020
  Serious: Yes (Death)
  Sender: ROCHE
  Company Number: CN-ROCHE-10000335517

PATIENT
  Age: 46 Year
  Sex: Male

DRUGS (1)
  1. COLUMVI [Suspect]
     Active Substance: GLOFITAMAB-GXBM
     Indication: Diffuse large B-cell lymphoma
     Dosage: STRENGTH: 10 MG (10ML)/VIAL
     Route: 050
     Dates: start: 20241211

REACTIONS (1)
  - Death [Fatal]
